FAERS Safety Report 7753620-0 (Version None)
Quarter: 2011Q3

REPORT INFORMATION
  Report Type: 
  Country: None (occurrence: None)
  Receive Date: 20110915
  Receipt Date: 20110912
  Transmission Date: 20111222
  Serious: Yes (Hospitalization)
  Sender: FDA-Public Use
  Company Number: JP-GLAXOSMITHKLINE-B0515279A

PATIENT
  Sex: Male

DRUGS (4)
  1. PAXIL [Suspect]
     Dosage: 20MG PER DAY
     Route: 048
     Dates: start: 20080201, end: 20080401
  2. AMARYL [Concomitant]
     Indication: DIABETES MELLITUS
     Dosage: .5MG PER DAY
     Route: 048
  3. PAXIL [Suspect]
     Indication: CIRRHOSIS ALCOHOLIC
     Dosage: 10MG PER DAY
     Route: 048
     Dates: end: 20080201
  4. URSO 250 [Concomitant]
     Indication: CIRRHOSIS ALCOHOLIC
     Route: 048

REACTIONS (11)
  - INAPPROPRIATE ANTIDIURETIC HORMONE SECRETION [None]
  - TOXICITY TO VARIOUS AGENTS [None]
  - DYSKINESIA [None]
  - SEROTONIN SYNDROME [None]
  - DYSARTHRIA [None]
  - RESTLESSNESS [None]
  - CONVULSION [None]
  - DEPRESSED LEVEL OF CONSCIOUSNESS [None]
  - GAIT DISTURBANCE [None]
  - HYPONATRAEMIA [None]
  - APHASIA [None]
